FAERS Safety Report 18879570 (Version 1)
Quarter: 2021Q1

REPORT INFORMATION
  Report Type: Spontaneous
  Country: US (occurrence: US)
  Receive Date: 20210211
  Receipt Date: 20210211
  Transmission Date: 20210420
  Serious: No
  Sender: FDA-Public Use
  Company Number: US-GW PHARMA-202102USGW00446

PATIENT

DRUGS (1)
  1. EPIDIOLEX [Suspect]
     Active Substance: CANNABIDIOL
     Indication: EPILEPSY
     Dosage: 10.29 MG/KG/DAY, 140 MILLIGRAM, BID (REACHING OUT TO MD OFFICE FOR INCREASED DOSE)
     Route: 048
     Dates: start: 202012

REACTIONS (1)
  - Weight increased [Unknown]
